FAERS Safety Report 24695714 (Version 1)
Quarter: 2024Q4

REPORT INFORMATION
  Report Type: Spontaneous
  Country: US (occurrence: US)
  Receive Date: 20241204
  Receipt Date: 20241204
  Transmission Date: 20250115
  Serious: Yes (Other)
  Sender: Kenvue
  Company Number: US-KENVUE-20241108359

PATIENT
  Age: 3 Decade
  Sex: Male

DRUGS (2)
  1. LISTERINE ORIGINAL [Suspect]
     Active Substance: EUCALYPTOL\MENTHOL\METHYL SALICYLATE\THYMOL
     Indication: Dental disorder prophylaxis
     Dosage: WHOLE BOTTLE/FILL UP THE CAP, SINGLE
     Route: 048
     Dates: start: 2024
  2. LISTERINE ORIGINAL [Suspect]
     Active Substance: EUCALYPTOL\MENTHOL\METHYL SALICYLATE\THYMOL
     Dosage: DOSE DID NOT MEASURE, ONCE A DAY AT NIGHT
     Route: 048
     Dates: start: 2024

REACTIONS (1)
  - Drug abuse [Unknown]

NARRATIVE: CASE EVENT DATE: 20240101
